FAERS Safety Report 16076085 (Version 1)
Quarter: 2019Q1

REPORT INFORMATION
  Report Type: Spontaneous
  Country: US (occurrence: US)
  Receive Date: 20190315
  Receipt Date: 20190315
  Transmission Date: 20190418
  Serious: Yes (Other)
  Sender: FDA-Public Use
  Company Number: US-LUPIN PHARMACEUTICALS INC.-2019-01479

PATIENT
  Sex: Female
  Weight: 72.56 kg

DRUGS (3)
  1. AMLODIPINE BESYLATE TABLETS USP, 5 MG [Suspect]
     Active Substance: AMLODIPINE BESYLATE
     Dosage: 5 MILLIGRAM, QD (NEW FORMULATION)
     Route: 048
  2. TYLENOL WITH CODEINE [Concomitant]
     Active Substance: ACETAMINOPHEN\CODEINE PHOSPHATE
     Indication: MUSCULOSKELETAL PAIN
     Dosage: UNK
     Route: 065
  3. AMLODIPINE BESYLATE TABLETS USP, 5 MG [Suspect]
     Active Substance: AMLODIPINE BESYLATE
     Indication: HYPERTENSION
     Dosage: 5 MILLIGRAM, QD (OLD FORMULATION)
     Route: 048
     Dates: start: 2011

REACTIONS (4)
  - Vision blurred [Not Recovered/Not Resolved]
  - Heart rate increased [Not Recovered/Not Resolved]
  - Dry eye [Not Recovered/Not Resolved]
  - Urinary retention [Not Recovered/Not Resolved]
